FAERS Safety Report 13325248 (Version 3)
Quarter: 2018Q2

REPORT INFORMATION
  Report Type: Report from Study
  Country: US (occurrence: US)
  Receive Date: 20170310
  Receipt Date: 20180403
  Transmission Date: 20180711
  Serious: Yes (Hospitalization)
  Sender: FDA-Public Use
  Company Number: US-ACTELION-A-US2017-151002

PATIENT
  Age: 26 Year
  Sex: Female
  Weight: 55.78 kg

DRUGS (7)
  1. UPTRAVI [Suspect]
     Active Substance: SELEXIPAG
     Indication: PULMONARY HYPERTENSION
     Dosage: 400 MCG, BID
     Route: 048
  2. UPTRAVI [Suspect]
     Active Substance: SELEXIPAG
     Dosage: 800 MCG, BID
     Route: 048
  3. TRACLEER [Suspect]
     Active Substance: BOSENTAN
     Dosage: UNK
     Route: 048
  4. UPTRAVI [Suspect]
     Active Substance: SELEXIPAG
     Dosage: 600 MCG, BID
     Route: 048
  5. WARFARIN [Concomitant]
     Active Substance: WARFARIN
  6. TRACLEER [Suspect]
     Active Substance: BOSENTAN
     Indication: PULMONARY HYPERTENSION
     Dosage: 125 MG, BID
     Route: 048
  7. ADCIRCA [Concomitant]
     Active Substance: TADALAFIL

REACTIONS (6)
  - Influenza [Unknown]
  - Respiratory tract infection viral [Unknown]
  - Anaemia [Unknown]
  - Loss of consciousness [Unknown]
  - Fluid overload [Unknown]
  - Dyspnoea [Unknown]
